FAERS Safety Report 7216117-2 (Version None)
Quarter: 2011Q1

REPORT INFORMATION
  Report Type: 
  Country: None (occurrence: None)
  Receive Date: 20110107
  Receipt Date: 20110103
  Transmission Date: 20110831
  Serious: Yes (Death, Disabling)
  Sender: FDA-Public Use
  Company Number: IT-CELGENEUS-083-C5013-10112925

PATIENT
  Sex: Male
  Weight: 65 kg

DRUGS (10)
  1. BACTRIM [Concomitant]
     Route: 048
     Dates: start: 20101020
  2. LASIX [Concomitant]
     Indication: OEDEMA
     Route: 048
     Dates: start: 20101110
  3. DEXAMETHASONE [Suspect]
     Indication: MULTIPLE MYELOMA
     Route: 065
     Dates: start: 20101020, end: 20101116
  4. BLOPRESS [Concomitant]
     Indication: HYPERTENSION
     Route: 048
     Dates: start: 19950101
  5. DOBETIN [Concomitant]
     Indication: ASTHENIA
     Route: 065
     Dates: start: 20101103
  6. DIURESIX [Concomitant]
     Indication: HYPERTENSION
     Route: 048
     Dates: start: 20100927
  7. LOBIVON [Concomitant]
     Indication: HYPERTENSION
     Route: 048
     Dates: start: 19950101
  8. CC-5013 [Suspect]
     Indication: MULTIPLE MYELOMA
     Route: 048
     Dates: start: 20101020, end: 20101026
  9. CARDIOASPIRIN [Concomitant]
     Indication: THROMBOSIS PROPHYLAXIS
     Route: 048
     Dates: start: 19950101
  10. LANSOPRAZOLE [Concomitant]
     Indication: PROPHYLAXIS
     Route: 048
     Dates: start: 20101020

REACTIONS (2)
  - DEATH [None]
  - GENERAL PHYSICAL HEALTH DETERIORATION [None]
